FAERS Safety Report 15090146 (Version 4)
Quarter: 2018Q3

REPORT INFORMATION
  Report Type: Report from Study
  Country: US (occurrence: US)
  Receive Date: 20180629
  Receipt Date: 20180831
  Transmission Date: 20181010
  Serious: Yes (Disabling, Other)
  Sender: FDA-Public Use
  Company Number: US-BAYER-2018-117329

PATIENT
  Age: 64 Year
  Sex: Male

DRUGS (9)
  1. NEXAVAR [Suspect]
     Active Substance: SORAFENIB
     Indication: HEPATOCELLULAR CARCINOMA
     Dosage: 1TAB AM AND 1TAB PM
     Route: 048
     Dates: start: 2018, end: 2018
  2. CARVEDILOL. [Concomitant]
     Active Substance: CARVEDILOL
     Dosage: 25 MG, BID
     Dates: start: 201401
  3. MYFORTIC [Concomitant]
     Active Substance: MYCOPHENOLATE SODIUM
     Dosage: 360 MG
     Dates: start: 201403
  4. NEXAVAR [Suspect]
     Active Substance: SORAFENIB
     Indication: HEPATOCELLULAR CARCINOMA
     Dosage: LOWER DOSE
     Dates: start: 2018, end: 2018
  5. NEXAVAR [Suspect]
     Active Substance: SORAFENIB
     Indication: HEPATOCELLULAR CARCINOMA
     Dosage: 200 MG IN THE MORNING AND 400 MG IN THE EVENING
     Route: 048
     Dates: start: 20180608, end: 2018
  6. NEXAVAR [Suspect]
     Active Substance: SORAFENIB
     Indication: HEPATOCELLULAR CARCINOMA
     Dosage: 200MG QAM AND 200MG QPM
     Route: 048
     Dates: start: 20180530, end: 2018
  7. SIROLIMUS. [Concomitant]
     Active Substance: SIROLIMUS
     Dosage: 0.5 MG, QD
     Dates: start: 201601
  8. NEXAVAR [Suspect]
     Active Substance: SORAFENIB
     Indication: HEPATOCELLULAR CARCINOMA
     Dosage: DOSE REDUCED
     Route: 048
     Dates: start: 2018, end: 201807
  9. TAMSULOSIN [Concomitant]
     Active Substance: TAMSULOSIN
     Dosage: 0.4 MG
     Dates: start: 201404

REACTIONS (27)
  - Insomnia [Not Recovered/Not Resolved]
  - Fatigue [Not Recovered/Not Resolved]
  - Drug dose omission [Recovered/Resolved]
  - Loss of personal independence in daily activities [Recovering/Resolving]
  - Mouth injury [Recovering/Resolving]
  - Metastases to spine [Not Recovered/Not Resolved]
  - Dysphonia [Recovering/Resolving]
  - Fatigue [Recovering/Resolving]
  - Blister [Recovering/Resolving]
  - Erythema [Recovering/Resolving]
  - Weight decreased [Unknown]
  - Weight decreased [Not Recovered/Not Resolved]
  - Off label use [Not Recovered/Not Resolved]
  - Oral mucosal erythema [Recovering/Resolving]
  - Nasal ulcer [Recovering/Resolving]
  - Inflammation [Recovering/Resolving]
  - Injury [Recovering/Resolving]
  - Insomnia [Not Recovered/Not Resolved]
  - Drug ineffective [Unknown]
  - Drug dose omission [None]
  - Ulcer [Recovering/Resolving]
  - Stomatitis [Recovering/Resolving]
  - Oral pain [Not Recovered/Not Resolved]
  - Oral mucosal blistering [Recovering/Resolving]
  - Stomatitis [Recovering/Resolving]
  - Nasal inflammation [Recovering/Resolving]
  - Oral pain [Recovering/Resolving]

NARRATIVE: CASE EVENT DATE: 2018
